FAERS Safety Report 20825665 (Version 1)
Quarter: 2022Q2

REPORT INFORMATION
  Report Type: Spontaneous
  Country: NL (occurrence: NL)
  Receive Date: 20220513
  Receipt Date: 20220513
  Transmission Date: 20220720
  Serious: Yes (Other)
  Sender: FDA-Public Use
  Company Number: None

PATIENT
  Age: 76 Year
  Sex: Female
  Weight: 58 kg

DRUGS (5)
  1. DILTIAZEM [Suspect]
     Active Substance: DILTIAZEM
     Indication: Cardiac disorder
     Dosage: LATER INCREASED TO DOUBLE DOSE.DILTIAZEM TABLET MGA 120MG / BRAND NAME NOT SPECIFIED,THERAPY START D
  2. DILTIAZEM [Suspect]
     Active Substance: DILTIAZEM
     Dosage: 1 DOSAGE FORMS DAILY; THERAPY END DATE : ASKU,DILTIAZEM TABLET MGA 120MG / BRAND NAME NOT SPECIFIED
     Dates: start: 2021
  3. ASPIRIN [Concomitant]
     Active Substance: ASPIRIN
     Dosage: ACETYLSALICYLIC ACID TABLET 80MG / BRAND NAME NOT SPECIFIED,THERAPY START DATE AND END DATE : ASKU
  4. ISOSORBIDE MONONITRATE [Concomitant]
     Active Substance: ISOSORBIDE MONONITRATE
     Dosage: ISOSORBIDE MONONITRATE TABLET MGA 60MG / BRAND NAME NOT SPECIFIED,THERAPY START DATE AND END DATE :
  5. PANTOPRAZOLE SODIUM [Concomitant]
     Active Substance: PANTOPRAZOLE SODIUM
     Dosage: PANTOPRAZOL TABLET MSR 40MG / BRAND NAME NOT SPECIFIED,THERAPY START DATE AND END DATE : ASKU

REACTIONS (1)
  - Angina pectoris [Recovered/Resolved]

NARRATIVE: CASE EVENT DATE: 20210520
